FAERS Safety Report 6890809-7 (Version None)
Quarter: 2010Q3

REPORT INFORMATION
  Report Type: 
  Country: None (occurrence: None)
  Receive Date: 20100731
  Receipt Date: 20090323
  Transmission Date: 20110219
  Serious: No
  Sender: FDA-Public Use
  Company Number: US-PFIZER INC-2008038740

PATIENT
  Sex: Female
  Weight: 55 kg

DRUGS (2)
  1. LIPITOR [Suspect]
     Indication: BLOOD CHOLESTEROL INCREASED
     Dosage: 10 MG, UNK
     Dates: start: 20071101
  2. ACETYLSALICYLIC ACID SRT [Concomitant]
     Dosage: UNK

REACTIONS (1)
  - HEADACHE [None]
